FAERS Safety Report 8201845-2 (Version None)
Quarter: 2012Q1

REPORT INFORMATION
  Report Type: 
  Country: None (occurrence: None)
  Receive Date: 20120307
  Receipt Date: 20120223
  Transmission Date: 20120608
  Serious: Yes (Other)
  Sender: FDA-Public Use
  Company Number: 2012S1000018

PATIENT
  Age: 11 Day
  Sex: Male
  Weight: 0.84 kg

DRUGS (20)
  1. ROCURONIUM BROMIDE [Concomitant]
  2. FLUCONAZOLE [Concomitant]
  3. EPINEPHRINE [Concomitant]
  4. SODIUM BICARBONATE [Concomitant]
  5. ATROPINE [Concomitant]
  6. INDOCIN [Concomitant]
  7. CEFOTAXIME [Concomitant]
  8. FUROSEMIDE [Concomitant]
  9. AMPICILLIN [Concomitant]
  10. FUROSEMIDE [Concomitant]
  11. VERSED [Concomitant]
  12. KETAMINE HCL [Concomitant]
  13. NORMAL-SERUM-ALBUMIN (HUMAN) [Concomitant]
  14. AMPICILLIN [Concomitant]
  15. AMPICILLIN [Concomitant]
  16. SODIUM BICARBONATE [Concomitant]
  17. FENTANYL [Concomitant]
  18. INOMAX [Suspect]
     Indication: BRONCHOPULMONARY DYSPLASIA
     Dosage: 20 PPM;CONT;INH
     Route: 055
     Dates: start: 20120118, end: 20120119
  19. CAFFEINE CITRATE [Concomitant]
  20. VANCOMYCIN [Concomitant]

REACTIONS (14)
  - CARDIAC MURMUR [None]
  - SEPSIS NEONATAL [None]
  - PNEUMOTHORAX [None]
  - ACIDOSIS [None]
  - ABDOMINAL DISTENSION [None]
  - ANTIBIOTIC LEVEL ABOVE THERAPEUTIC [None]
  - PULMONARY EOSINOPHILIA [None]
  - ATELECTASIS NEONATAL [None]
  - CONDITION AGGRAVATED [None]
  - NEONATAL ANURIA [None]
  - HAEMATURIA [None]
  - PULMONARY INTERSTITIAL EMPHYSEMA SYNDROME [None]
  - NEONATAL HYPOTENSION [None]
  - PATENT DUCTUS ARTERIOSUS [None]
